FAERS Safety Report 8435047-1 (Version None)
Quarter: 2012Q2

REPORT INFORMATION
  Report Type: 
  Country: None (occurrence: None)
  Receive Date: 20120608
  Receipt Date: 20120526
  Transmission Date: 20120825
  Serious: Yes (Hospitalization, Disabling)
  Sender: FDA-Public Use
  Company Number: 2012AP001608

PATIENT
  Age: 68 Year
  Sex: Female

DRUGS (1)
  1. ALENDRONATE SODIUM [Suspect]
     Indication: PRODUCT USED FOR UNKNOWN INDICATION
     Dosage: 70 MG; PO; QW
     Route: 048

REACTIONS (3)
  - STRESS FRACTURE [None]
  - FEMUR FRACTURE [None]
  - FALL [None]
